FAERS Safety Report 23518801 (Version 3)
Quarter: 2024Q2

REPORT INFORMATION
  Report Type: Spontaneous
  Country: FR (occurrence: FR)
  Receive Date: 20240213
  Receipt Date: 20240529
  Transmission Date: 20240715
  Serious: Yes (Other)
  Sender: FDA-Public Use
  Company Number: FR-002147023-NVSC2024FR029319

PATIENT

DRUGS (5)
  1. LUTATHERA [Suspect]
     Active Substance: LUTETIUM OXODOTREOTIDE LU-177
     Indication: Neuroendocrine tumour
     Dosage: 7171 MBQ, ONCE/SINGLE (1ST ADMINISTRATION)
     Route: 065
     Dates: start: 20210105, end: 20210105
  2. LUTATHERA [Suspect]
     Active Substance: LUTETIUM OXODOTREOTIDE LU-177
     Dosage: 7115 MBQ, ONCE/SINGLE (2ND ADMINIATRATION)
     Route: 065
     Dates: start: 20210311, end: 20210311
  3. LUTATHERA [Suspect]
     Active Substance: LUTETIUM OXODOTREOTIDE LU-177
     Dosage: 7377 MBQ, ONCE/SINGLE (3RD ADMINASTRATION)
     Route: 065
     Dates: start: 20210504, end: 20210504
  4. LUTATHERA [Suspect]
     Active Substance: LUTETIUM OXODOTREOTIDE LU-177
     Dosage: 7193 MBQ, ONCE/SINGLE (4TH ADMINISTRATION)
     Route: 065
     Dates: start: 20210722, end: 20210722
  5. LUTATHERA [Suspect]
     Active Substance: LUTETIUM OXODOTREOTIDE LU-177
     Dosage: UNK, ONCE/SINGLE (5TH ADMINISTRATION)
     Route: 065
     Dates: start: 20240130, end: 20240130

REACTIONS (4)
  - Hepatic neuroendocrine tumour [Unknown]
  - Malignant neoplasm progression [Unknown]
  - Metastases to lymph nodes [Unknown]
  - Off label use [Unknown]

NARRATIVE: CASE EVENT DATE: 20230801
